FAERS Safety Report 23149442 (Version 1)
Quarter: 2023Q4

REPORT INFORMATION
  Report Type: Spontaneous
  Country: IR (occurrence: IR)
  Receive Date: 20231106
  Receipt Date: 20231106
  Transmission Date: 20240110
  Serious: Yes (Other)
  Sender: FDA-Public Use
  Company Number: IR-SUN PHARMACEUTICAL INDUSTRIES LTD-2023R1-416594

PATIENT
  Age: 69 Year
  Sex: Female

DRUGS (1)
  1. AMPHOTERICIN B [Suspect]
     Active Substance: AMPHOTERICIN B
     Indication: Sinusitis
     Route: 042

REACTIONS (3)
  - Drug ineffective [Unknown]
  - Disease progression [Unknown]
  - Hypoxia [Unknown]
